FAERS Safety Report 12186925 (Version 5)
Quarter: 2016Q3

REPORT INFORMATION
  Report Type: Report from Study
  Country: FR (occurrence: FR)
  Receive Date: 20160317
  Receipt Date: 20160706
  Transmission Date: 20161109
  Serious: Yes (Hospitalization)
  Sender: FDA-Public Use
  Company Number: PHHY2016FR033154

PATIENT
  Age: 83 Year
  Sex: Female

DRUGS (3)
  1. AFINITOR [Suspect]
     Active Substance: EVEROLIMUS
     Dosage: 2.5 MG, QD
     Route: 048
     Dates: start: 20150511, end: 20151102
  2. EXEMESTANE. [Suspect]
     Active Substance: EXEMESTANE
     Indication: PRODUCT USED FOR UNKNOWN INDICATION
     Dosage: 25 MG, QD
     Route: 065
     Dates: start: 20150202, end: 20160201
  3. AFINITOR [Suspect]
     Active Substance: EVEROLIMUS
     Indication: BREAST CANCER
     Dosage: 5 MG, QD
     Route: 048
     Dates: start: 20150202, end: 20150415

REACTIONS (15)
  - Respiratory disorder [Recovered/Resolved]
  - Dyspnoea [Unknown]
  - Malaise [Unknown]
  - Stomatitis [Recovering/Resolving]
  - Decreased appetite [Unknown]
  - Tachypnoea [Unknown]
  - Asthenia [Recovering/Resolving]
  - Oedema peripheral [Unknown]
  - Lung disorder [Recovered/Resolved]
  - Dysgeusia [Recovered/Resolved]
  - Fatigue [Unknown]
  - Cardiac failure [Recovered/Resolved]
  - Decreased appetite [Recovered/Resolved]
  - Decreased appetite [Recovered/Resolved]
  - Hypercholesterolaemia [Not Recovered/Not Resolved]

NARRATIVE: CASE EVENT DATE: 20150303
